FAERS Safety Report 6034684-1 (Version None)
Quarter: 2009Q1

REPORT INFORMATION
  Report Type: 
  Country: None (occurrence: None)
  Receive Date: 20090112
  Receipt Date: 20090105
  Transmission Date: 20090719
  Serious: Yes (Hospitalization)
  Sender: FDA-Public Use
  Company Number: AU-PFIZER INC-2008159122

PATIENT

DRUGS (5)
  1. ATORVASTATIN CALCIUM [Suspect]
     Dosage: 20 MG, 1X/DAY
     Route: 048
     Dates: start: 20020115
  2. ASPIRIN [Suspect]
     Dosage: 100 MG, 1X/DAY
     Route: 048
     Dates: start: 20020115
  3. FOLIC ACID [Suspect]
     Dosage: 5 MG, 1X/DAY
     Route: 048
  4. OMEPRAZOLE [Suspect]
     Dosage: 10 MG, 1X/DAY
     Route: 048
     Dates: start: 20020115
  5. RAMIPRIL [Suspect]
     Dosage: 5 MG, 1X/DAY
     Route: 048
     Dates: start: 20020115

REACTIONS (2)
  - AMNESIA [None]
  - MEMORY IMPAIRMENT [None]
